FAERS Safety Report 8863056 (Version 1)
Quarter: 2012Q4

REPORT INFORMATION
  Report Type: 
  Country: US (occurrence: US)
  Receive Date: 20121026
  Receipt Date: 20121026
  Transmission Date: 20130627
  Serious: No
  Sender: FDA-Public Use
  Company Number: US-009507513-1210USA002778

PATIENT
  Age: 34 Year
  Sex: Female
  Weight: 98.41 kg

DRUGS (2)
  1. IMPLANON [Suspect]
     Indication: CONTRACEPTION
     Dosage: 1 DF, every 3 years
     Route: 059
     Dates: start: 20090922
  2. VICODIN [Concomitant]
     Indication: BACK DISORDER

REACTIONS (5)
  - Hypoaesthesia [Unknown]
  - Hypoaesthesia [Unknown]
  - Device dislocation [Unknown]
  - Medical device complication [Unknown]
  - Incorrect drug administration duration [Unknown]
